FAERS Safety Report 8056987-1 (Version None)
Quarter: 2012Q1

REPORT INFORMATION
  Report Type: 
  Country: None (occurrence: None)
  Receive Date: 20120119
  Receipt Date: 20120112
  Transmission Date: 20120608
  Serious: Yes (Hospitalization)
  Sender: FDA-Public Use
  Company Number: US-ACTELION-A-US2011-50486

PATIENT

DRUGS (2)
  1. TRACLEER [Suspect]
     Indication: PULMONARY ARTERIAL HYPERTENSION
     Dosage: UNK MG, UNK
     Route: 048
     Dates: start: 20101025
  2. VENTAVIS [Suspect]
     Indication: PULMONARY ARTERIAL HYPERTENSION
     Dosage: 5 UG, X6/DAY
     Route: 055
     Dates: start: 20101001

REACTIONS (7)
  - DIZZINESS [None]
  - LOSS OF CONSCIOUSNESS [None]
  - DIZZINESS POSTURAL [None]
  - FALL [None]
  - DEVICE MISUSE [None]
  - SYNCOPE [None]
  - ABASIA [None]
